FAERS Safety Report 16071192 (Version 1)
Quarter: 2019Q1

REPORT INFORMATION
  Report Type: Spontaneous
  Country: US (occurrence: US)
  Receive Date: 20190212
  Receipt Date: 20190212
  Transmission Date: 20190418
  Serious: Yes (Other)
  Sender: FDA-Public Use
  Company Number: None

PATIENT
  Age: 80 Year
  Sex: Female
  Weight: 74.39 kg

DRUGS (13)
  1. AMLODIPINE [Concomitant]
     Active Substance: AMLODIPINE BESYLATE
  2. VITAMIN B12 [Concomitant]
     Active Substance: CYANOCOBALAMIN
  3. TURMERIC [Concomitant]
     Active Substance: HERBALS\TURMERIC
  4. LEVOTHYROXINE. [Concomitant]
     Active Substance: LEVOTHYROXINE
  5. CALCIUM [Concomitant]
     Active Substance: CALCIUM
  6. VITAMIN D [Concomitant]
     Active Substance: CHOLECALCIFEROL
  7. POLUSHLENE GLYCAL [Concomitant]
  8. LORATAINE [Concomitant]
  9. FOLIC ACID. [Concomitant]
     Active Substance: FOLIC ACID
  10. FISH OIL [Concomitant]
     Active Substance: FISH OIL
  11. PREDNISONE 10MG [Suspect]
     Active Substance: PREDNISONE
     Indication: PRURITUS
     Dosage: ?          QUANTITY:1 DF DOSAGE FORM;?
     Route: 048
     Dates: start: 20180728, end: 20180728
  12. VITAMIN C [Concomitant]
     Active Substance: ASCORBIC ACID
  13. ARTHRITIS PAIN RELIEVER [Concomitant]
     Active Substance: ACETAMINOPHEN

REACTIONS (2)
  - Eye swelling [None]
  - Vision blurred [None]

NARRATIVE: CASE EVENT DATE: 20180728
